FAERS Safety Report 5845894-8 (Version None)
Quarter: 2008Q3

REPORT INFORMATION
  Report Type: 
  Country: None (occurrence: None)
  Receive Date: 20080814
  Receipt Date: 20080807
  Transmission Date: 20090109
  Serious: Yes (Hospitalization)
  Sender: FDA-Public Use
  Company Number: US-ELI_LILLY_AND_COMPANY-US200808000753

PATIENT
  Sex: Female
  Weight: 90.703 kg

DRUGS (22)
  1. HUMALOG [Suspect]
     Dates: start: 20070101
  2. HUMULIN 70/30 [Suspect]
     Indication: TYPE 2 DIABETES MELLITUS
     Dosage: 15 U, 2/D
     Route: 058
     Dates: start: 20080601
  3. HUMULIN 70/30 [Suspect]
     Dosage: 20 U, 2/D
     Route: 058
     Dates: start: 20080601
  4. BYETTA [Concomitant]
     Indication: TYPE 2 DIABETES MELLITUS
     Dosage: 10 UG, 2/D
     Route: 058
     Dates: end: 20070101
  5. BYETTA [Concomitant]
     Dosage: 10 UG, 2/D
     Route: 058
  6. BYETTA [Concomitant]
     Dosage: 5 UG, 2/D
     Route: 058
  7. ACTONEL [Concomitant]
     Indication: TYPE 2 DIABETES MELLITUS
     Dosage: 100 MG, DAILY (1/D)
     Route: 048
     Dates: start: 20080401
  8. LEXAPRO [Concomitant]
     Indication: ANXIETY
     Dosage: 20 MG, DAILY (1/D)
     Route: 048
  9. SYMLIN [Concomitant]
     Dates: start: 20080601
  10. LEVOTHROID [Concomitant]
     Indication: HYPOTHYROIDISM
     Dosage: 50 UG, DAILY (1/D)
     Route: 048
     Dates: start: 20080201
  11. METOPROLOL SUCCINATE [Concomitant]
     Indication: HYPERTENSION
     Dosage: 50 MG, DAILY (1/D)
     Route: 048
     Dates: start: 20080401
  12. OMEPRAZOLE [Concomitant]
     Indication: GASTROOESOPHAGEAL REFLUX DISEASE
     Dosage: 20 MG, 2/D
     Route: 048
     Dates: start: 20030101
  13. LORAZEPAM [Concomitant]
     Indication: ANXIETY
     Dosage: 20 MG, 2/D
     Route: 048
     Dates: start: 19930101
  14. DIOVAN [Concomitant]
     Indication: HYPERTENSION
     Dosage: 12.5 MG, DAILY (1/D)
     Route: 048
     Dates: start: 19930101
  15. SIMVASTATIN [Concomitant]
     Indication: BLOOD CHOLESTEROL
     Dosage: 80 MG, DAILY (1/D)
     Route: 048
     Dates: start: 19970101
  16. ASPIRIN [Concomitant]
     Dosage: 81 MG, DAILY (1/D)
     Route: 048
     Dates: start: 20030101
  17. COMBIVENT [Concomitant]
     Indication: ASTHMA
     Dosage: UNK, AS NEEDED
     Dates: start: 20000101
  18. SINGULAIR [Concomitant]
     Indication: ASTHMA
     Dosage: 10 MG, EACH EVENING
     Route: 048
     Dates: start: 20000101
  19. VITAMIN TAB [Concomitant]
     Route: 048
  20. MINERALS NOS [Concomitant]
     Route: 048
  21. GLUCOVANCE [Concomitant]
     Indication: TYPE 2 DIABETES MELLITUS
     Dosage: 500 MG, 2/D
     Route: 048
     Dates: end: 20080401
  22. PLAVIX [Concomitant]
     Dosage: 75 MG, DAILY (1/D)
     Route: 048
     Dates: start: 20030101, end: 20080501

REACTIONS (3)
  - ASTHMA [None]
  - BLOOD GLUCOSE INCREASED [None]
  - MYOCARDIAL INFARCTION [None]
